FAERS Safety Report 13655521 (Version 6)
Quarter: 2017Q4

REPORT INFORMATION
  Report Type: Spontaneous
  Country: CA (occurrence: CA)
  Receive Date: 20170615
  Receipt Date: 20171030
  Transmission Date: 20180320
  Serious: Yes (Other)
  Sender: FDA-Public Use
  Company Number: CA-GLAXOSMITHKLINE-CA2016GSK062242

PATIENT
  Age: 48 Year
  Sex: Female
  Weight: 58 kg

DRUGS (23)
  1. PLAQUENIL [Concomitant]
     Active Substance: HYDROXYCHLOROQUINE SULFATE
     Indication: PRODUCT USED FOR UNKNOWN INDICATION
     Dosage: 40 MG, 1D
     Route: 048
  2. PLAQUENIL [Concomitant]
     Active Substance: HYDROXYCHLOROQUINE SULFATE
     Dosage: 400 UNK, UNK
  3. APO-ESOMEPRAZOLE [Concomitant]
     Active Substance: ESOMEPRAZOLE
     Dosage: 40 MG, UNK
  4. IRON [Concomitant]
     Active Substance: IRON
     Dosage: 300 MG, UNK
  5. BENLYSTA [Suspect]
     Active Substance: BELIMUMAB
     Dosage: UNK
  6. NAPROXEN. [Concomitant]
     Active Substance: NAPROXEN
     Dosage: 500 MG, PRN
  7. ARAVA [Concomitant]
     Active Substance: LEFLUNOMIDE
     Dosage: 20 MG, EVERY OTHER DAY
     Dates: start: 20150911
  8. CALCIUM [Concomitant]
     Active Substance: CALCIUM
     Dosage: 500 MG, QD
  9. BENLYSTA [Suspect]
     Active Substance: BELIMUMAB
     Indication: SYSTEMIC LUPUS ERYTHEMATOSUS
     Dosage: 600 MG, UNK
     Route: 042
     Dates: start: 20160420
  10. PREDNISONE. [Concomitant]
     Active Substance: PREDNISONE
     Indication: PRODUCT USED FOR UNKNOWN INDICATION
     Dosage: 10 MG, UNK
  11. PREDNISONE. [Concomitant]
     Active Substance: PREDNISONE
     Dosage: 5 MG, UNK
  12. VITAMIN B12 [Concomitant]
     Active Substance: CYANOCOBALAMIN
     Dosage: 250 UG, UNK
  13. APO-AMITRIPTYLINE [Concomitant]
     Active Substance: AMITRIPTYLINE HYDROCHLORIDE
     Indication: NEURALGIA
     Dosage: 10 MG, PRN
  14. CIPRO [Suspect]
     Active Substance: CIPROFLOXACIN HYDROCHLORIDE
     Indication: LOWER RESPIRATORY TRACT INFECTION
  15. METHOTREXATE. [Concomitant]
     Active Substance: METHOTREXATE
     Indication: PRODUCT USED FOR UNKNOWN INDICATION
     Dosage: 15 MG, WE
     Route: 048
     Dates: start: 20161115
  16. MAGNESIUM [Concomitant]
     Active Substance: MAGNESIUM
     Dosage: 500 MG, UNK
  17. VITAMIN D3 [Concomitant]
     Active Substance: CHOLECALCIFEROL
     Dosage: 1000 UNK, UNK
  18. CIPRO [Suspect]
     Active Substance: CIPROFLOXACIN HYDROCHLORIDE
     Indication: SINUSITIS
     Dosage: UNK
     Route: 048
  19. PREDNISONE. [Concomitant]
     Active Substance: PREDNISONE
     Dosage: 7.5 MG, 1D
  20. NIFEDIPINE XR [Concomitant]
     Dosage: UNK, 30-60MG QD
  21. FOLIC ACID. [Concomitant]
     Active Substance: FOLIC ACID
     Dosage: 5 MG, QD
  22. BENLYSTA [Suspect]
     Active Substance: BELIMUMAB
     Dosage: UNK
     Route: 042
  23. EFFEXOR XR [Concomitant]
     Active Substance: VENLAFAXINE HYDROCHLORIDE
     Dosage: 150 MG, UNK
     Dates: start: 20160409

REACTIONS (36)
  - Constipation [Unknown]
  - Nausea [Unknown]
  - Sinusitis [Recovering/Resolving]
  - Palpitations [Unknown]
  - Sputum discoloured [Not Recovered/Not Resolved]
  - Malaise [Unknown]
  - Headache [Recovered/Resolved]
  - Vulvovaginal mycotic infection [Recovered/Resolved]
  - Visual impairment [Unknown]
  - Heart rate irregular [Recovered/Resolved]
  - Cough [Not Recovered/Not Resolved]
  - Feeling abnormal [Unknown]
  - Dizziness [Unknown]
  - Chills [Unknown]
  - Asthenia [Unknown]
  - Oral herpes [Not Recovered/Not Resolved]
  - Hypersensitivity [Unknown]
  - Intentional dose omission [Unknown]
  - Sinus pain [Unknown]
  - Headache [Unknown]
  - Cold sweat [Unknown]
  - Malaise [Unknown]
  - Fatigue [Unknown]
  - Pyrexia [Unknown]
  - Systemic lupus erythematosus [Recovered/Resolved]
  - Influenza like illness [Unknown]
  - Productive cough [Not Recovered/Not Resolved]
  - Fibromyalgia [Unknown]
  - Lower respiratory tract infection [Not Recovered/Not Resolved]
  - Hepatic enzyme increased [Unknown]
  - Nasal inflammation [Recovered/Resolved]
  - Peripheral swelling [Recovered/Resolved]
  - Musculoskeletal stiffness [Recovering/Resolving]
  - Increased bronchial secretion [Unknown]
  - Sternitis [Unknown]
  - Pain in extremity [Recovered/Resolved]

NARRATIVE: CASE EVENT DATE: 20161007
